FAERS Safety Report 19737658 (Version 1)
Quarter: 2021Q3

REPORT INFORMATION
  Report Type: Spontaneous
  Country: CN (occurrence: CN)
  Receive Date: 20210824
  Receipt Date: 20210824
  Transmission Date: 20211014
  Serious: Yes (Other)
  Sender: FDA-Public Use
  Company Number: CN-ROCHE-2891752

PATIENT

DRUGS (6)
  1. GEMCITABINE. [Concomitant]
     Active Substance: GEMCITABINE
     Indication: PANCREATIC CARCINOMA
  2. NIVOLUMAB [Concomitant]
     Active Substance: NIVOLUMAB
     Indication: PANCREATIC CARCINOMA
  3. LENVATINIB [Concomitant]
     Active Substance: LENVATINIB
     Indication: PANCREATIC CARCINOMA
  4. AVASTIN [Suspect]
     Active Substance: BEVACIZUMAB
     Indication: PANCREATIC CARCINOMA
     Dosage: DAY1
     Route: 042
     Dates: start: 20210714
  5. TEGAFUR GIMERACIL AND OTERACIL POTASSIUM [Concomitant]
     Active Substance: GIMERACIL\OTERACIL\TEGAFUR
     Indication: PANCREATIC CARCINOMA
  6. TECENTRIQ [Suspect]
     Active Substance: ATEZOLIZUMAB
     Indication: PANCREATIC CARCINOMA
     Route: 065
     Dates: start: 20210714

REACTIONS (6)
  - Haemorrhage [Unknown]
  - Blood pressure decreased [Unknown]
  - C-reactive protein increased [Unknown]
  - Off label use [Unknown]
  - Liver injury [Unknown]
  - Hepatic failure [Unknown]

NARRATIVE: CASE EVENT DATE: 202108
